FAERS Safety Report 7316120-8 (Version None)
Quarter: 2011Q1

REPORT INFORMATION
  Report Type: 
  Country: None (occurrence: None)
  Receive Date: 20110225
  Receipt Date: 20110216
  Transmission Date: 20110831
  Serious: Yes (Other)
  Sender: FDA-Public Use
  Company Number: JP-JNJFOC-20101204155

PATIENT
  Sex: Female

DRUGS (4)
  1. REMICADE [Suspect]
     Dosage: 16TH INFUSION
     Route: 042
  2. REMICADE [Suspect]
     Indication: CROHN'S DISEASE
     Dosage: 1ST INFUSION AND CONTINUED THEREAFTER
     Route: 042
  3. REMICADE [Suspect]
     Route: 042
  4. STEROIDS NOS [Concomitant]

REACTIONS (1)
  - DRUG ERUPTION [None]
